FAERS Safety Report 7274898-6 (Version None)
Quarter: 2011Q1

REPORT INFORMATION
  Report Type: 
  Country: None (occurrence: None)
  Receive Date: 20110202
  Receipt Date: 20110202
  Transmission Date: 20110831
  Serious: Yes (Life-Threatening)
  Sender: FDA-Public Use
  Company Number: None

PATIENT
  Age: 51 Year
  Sex: Female
  Weight: 58.9676 kg

DRUGS (1)
  1. METRONIDAZOLE 250MG TAB [Suspect]
     Indication: CLOSTRIDIAL INFECTION
     Dosage: ONE TABLET THREE TIMES A DAY PO
     Route: 048
     Dates: start: 20101124, end: 20101127

REACTIONS (2)
  - PRODUCT QUALITY ISSUE [None]
  - DRUG INEFFECTIVE [None]
